FAERS Safety Report 6504276-6 (Version None)
Quarter: 2009Q4

REPORT INFORMATION
  Report Type: 
  Country: None (occurrence: None)
  Receive Date: 20091217
  Receipt Date: 20091210
  Transmission Date: 20100525
  Serious: Yes (Hospitalization, Other)
  Sender: FDA-Public Use
  Company Number: US-PFIZER INC-2005172549

PATIENT
  Sex: Female
  Weight: 84.37 kg

DRUGS (15)
  1. NEURONTIN [Suspect]
     Indication: NEUROPATHY PERIPHERAL
     Route: 065
  2. LYRICA [Suspect]
     Indication: NEUROPATHY PERIPHERAL
     Dosage: 50 MG, UNK
     Route: 065
     Dates: start: 20051220, end: 20051220
  3. LYRICA [Suspect]
     Dosage: 200 MG, 3X/DAY
     Route: 048
     Dates: start: 20050101
  4. WARFARIN [Suspect]
     Indication: THROMBOSIS
     Route: 065
     Dates: start: 20050301
  5. NORVASC [Concomitant]
     Route: 065
  6. KLOR-CON [Concomitant]
     Route: 065
  7. FEMARA [Concomitant]
     Route: 065
  8. PROTONIX [Concomitant]
     Route: 065
  9. ASPIRIN [Concomitant]
     Route: 065
  10. ARAVA [Concomitant]
     Route: 065
  11. PROZAC [Concomitant]
     Route: 065
  12. PREDNISONE [Concomitant]
     Route: 065
  13. PREDNISOLONE [Concomitant]
     Indication: RHEUMATOID ARTHRITIS
     Dosage: 4 MG, 1X/DAY
  14. CYMBALTA [Concomitant]
     Indication: DEPRESSION
     Dosage: 4 MG, 1X/DAY
     Route: 048
  15. CALCIUM [Concomitant]
     Dosage: UNK, 1X/DAY

REACTIONS (14)
  - ABDOMINAL DISTENSION [None]
  - ANTICOAGULATION DRUG LEVEL ABOVE THERAPEUTIC [None]
  - DECREASED APPETITE [None]
  - DIARRHOEA [None]
  - DRUG INEFFECTIVE [None]
  - DRY MOUTH [None]
  - HYPERHIDROSIS [None]
  - INSOMNIA [None]
  - NEUROPATHY PERIPHERAL [None]
  - OEDEMA PERIPHERAL [None]
  - PRURITUS [None]
  - SOCIAL FEAR [None]
  - THROMBOSIS [None]
  - WEIGHT INCREASED [None]
